FAERS Safety Report 6694819-4 (Version None)
Quarter: 2010Q2

REPORT INFORMATION
  Report Type: 
  Country: None (occurrence: None)
  Receive Date: 20100423
  Receipt Date: 20100414
  Transmission Date: 20101027
  Serious: Yes (Hospitalization, Other)
  Sender: FDA-Public Use
  Company Number: JP-JNJFOC-20100405612

PATIENT
  Age: 11 Year
  Sex: Female

DRUGS (5)
  1. REMICADE [Suspect]
     Indication: CROHN'S DISEASE
     Dosage: WEEKS 0, 2, 6
     Route: 042
  2. REMICADE [Suspect]
     Route: 042
  3. SALAZOSULFAPYRIDINE [Suspect]
     Indication: CROHN'S DISEASE
  4. SALAZOSULFAPYRIDINE [Suspect]
  5. 5-ASA [Suspect]
     Indication: CROHN'S DISEASE

REACTIONS (5)
  - ALOPECIA [None]
  - CROHN'S DISEASE [None]
  - LIVER DISORDER [None]
  - LUNG DISORDER [None]
  - NUTRITIONAL CONDITION ABNORMAL [None]
